FAERS Safety Report 20120866 (Version 3)
Quarter: 2022Q4

REPORT INFORMATION
  Report Type: Report from Study
  Country: KR (occurrence: KR)
  Receive Date: 20211127
  Receipt Date: 20221010
  Transmission Date: 20230113
  Serious: Yes (Hospitalization)
  Sender: FDA-Public Use
  Company Number: KR-BIAL-BIAL-09629

PATIENT

DRUGS (40)
  1. OPICAPONE [Suspect]
     Active Substance: OPICAPONE
     Indication: Parkinsonism
     Dosage: 50 MILLIGRAM, 1X / DAY
     Route: 048
     Dates: start: 20211007, end: 20211102
  2. OPICAPONE [Suspect]
     Active Substance: OPICAPONE
     Dosage: 50 MILLIGRAM, 1X / DAY
     Route: 048
     Dates: start: 20211103, end: 20211115
  3. GLULESS [Concomitant]
     Indication: Diabetes mellitus
     Dosage: 1 DOSAGE FORM, DAILY
     Route: 048
     Dates: end: 20211115
  4. SUGAMET [EVOGLIPTIN TARTRATE;METFORMIN HYDROCHLORIDE] [Concomitant]
     Indication: Diabetes mellitus
     Dosage: 1 DOSAGE FORM, DAILY
     Route: 048
     Dates: end: 20211115
  5. GLUCOPHAGE XR [Concomitant]
     Active Substance: METFORMIN HYDROCHLORIDE
     Indication: Diabetes mellitus
     Dosage: 1 DOSAGE FORM, DAILY
     Route: 048
  6. GLUCOPHAGE XR [Concomitant]
     Active Substance: METFORMIN HYDROCHLORIDE
     Dosage: 1 DOSAGE FORM, DAILY
     Route: 048
  7. GLUCOPHAGE XR [Concomitant]
     Active Substance: METFORMIN HYDROCHLORIDE
     Dosage: 1 DOSAGE FORM, DAILY
     Route: 048
  8. HUTECAN [Concomitant]
     Indication: Hypertension
     Dosage: 1 DOSAGE FORM, DAILY
     Route: 048
     Dates: end: 20211115
  9. ASTECT [Concomitant]
     Indication: Angina pectoris
     Dosage: 1 DOSAGE FORM, DAILY
     Route: 048
     Dates: end: 20211115
  10. GODEX [ADENINE HYDROCHLORIDE;BIFENDATE;CARNITINE OROTATE;CYANOCOBALAMI [Concomitant]
     Indication: Hepatic steatosis
     Dosage: 2 DOSAGE FORM, DAILY
     Route: 048
  11. AMANTA [AMANTADINE HYDROCHLORIDE] [Concomitant]
     Indication: Parkinsonism
     Dosage: 1 DOSAGE FORM, DAILY
     Route: 048
     Dates: start: 20191113
  12. AZILECT [Concomitant]
     Active Substance: RASAGILINE MESYLATE
     Indication: Parkinsonism
     Dosage: 1 DOSAGE FORM, DAILY
     Route: 048
     Dates: start: 20210825
  13. AZILECT [Concomitant]
     Active Substance: RASAGILINE MESYLATE
     Indication: Parkinsonism
  14. MOSAPRIDE CITRATE [Concomitant]
     Active Substance: MOSAPRIDE CITRATE
     Indication: Gastrointestinal disorder
     Dosage: 1 DOSAGE FORM, DAILY
     Route: 048
     Dates: start: 20200313
  15. MOSAPRIDE CITRATE [Concomitant]
     Active Substance: MOSAPRIDE CITRATE
     Indication: Gastrointestinal disorder prophylaxis
  16. PRAPEXOLE [Concomitant]
     Indication: Parkinsonism
     Dosage: 1 DOSAGE FORM, DAILY
     Route: 048
     Dates: start: 20191113
  17. PRAPEXOLE [Concomitant]
     Indication: Parkinsonism
  18. RIVOTRIL [Concomitant]
     Active Substance: CLONAZEPAM
     Indication: Prophylaxis
     Dosage: 1 DOSAGE FORM, DAILY
     Route: 048
     Dates: start: 20191113
  19. RIVOTRIL [Concomitant]
     Active Substance: CLONAZEPAM
     Indication: Sleep disorder therapy
  20. ATORVASTATIN CALCIUM [Concomitant]
     Active Substance: ATORVASTATIN CALCIUM
     Indication: Hypertension
     Dosage: 1 DOSAGE FORM, QD
     Route: 048
     Dates: end: 20211115
  21. Sugamet [Concomitant]
     Indication: Diabetes mellitus
     Dosage: 1 DOSAGE FORM, DAILY
     Route: 048
     Dates: end: 20211115
  22. Atorstan [Concomitant]
     Indication: Hypertension
     Dosage: 1 DOSAGE FORM, DAILY
     Route: 048
     Dates: end: 20211115
  23. Godex [Concomitant]
     Indication: Hepatic steatosis
     Dosage: 2 DOSAGE FORM, DAILY
     Route: 048
  24. PK-MERZ [AMANTADINE] [Concomitant]
     Indication: Parkinsonism
     Dosage: 1 DOSAGE FORM, DAILY
     Route: 048
     Dates: start: 20191113
  25. BENSERAZIDE HYDROCHLORIDE\LEVODOPA [Concomitant]
     Active Substance: BENSERAZIDE HYDROCHLORIDE\LEVODOPA
     Indication: Parkinson^s disease
     Dosage: 200,50 MG
     Route: 048
  26. BENSERAZIDE HYDROCHLORIDE\LEVODOPA [Concomitant]
     Active Substance: BENSERAZIDE HYDROCHLORIDE\LEVODOPA
     Dosage: 1 DOSAGE FORM, UNKNOWN
     Route: 048
     Dates: start: 202111
  27. BENSERAZIDE HYDROCHLORIDE\LEVODOPA [Concomitant]
     Active Substance: BENSERAZIDE HYDROCHLORIDE\LEVODOPA
     Dosage: UNK UNK, TID
     Dates: start: 20211103
  28. CLONAZEPAM [Concomitant]
     Active Substance: CLONAZEPAM
     Dosage: 1 DOSAGE FORM, UNKNOWN
     Route: 048
     Dates: start: 202111
  29. KEPPRA [Concomitant]
     Active Substance: LEVETIRACETAM
     Dosage: 1 DOSAGE FORM, UNKNOWN
     Route: 048
     Dates: start: 202111
  30. PK-MERZ [Concomitant]
     Active Substance: AMANTADINE
     Dosage: 100 MILLIGRAM, UNKNOWN
     Route: 048
     Dates: start: 202111
  31. LINAGLIPTIN [Concomitant]
     Active Substance: LINAGLIPTIN
     Dosage: 1 DOSAGE FORM, UNKNOWN
     Route: 048
     Dates: start: 202111
  32. GLUCOPHAGE [Concomitant]
     Active Substance: METFORMIN HYDROCHLORIDE
     Dosage: 1 DOSAGE FORM, UNKNOWN
     Route: 048
     Dates: start: 202111
  33. DIETARY SUPPLEMENT\HERBALS\MILK THISTLE [Concomitant]
     Active Substance: DIETARY SUPPLEMENT\HERBALS\MILK THISTLE
     Dosage: 1 DOSAGE FORM, UNKNOWN
     Route: 048
     Dates: start: 202111
  34. LOSARTAN [Concomitant]
     Active Substance: LOSARTAN
     Dosage: UNK
     Route: 048
     Dates: start: 202111
  35. LIPITOR [Concomitant]
     Active Substance: ATORVASTATIN CALCIUM
     Dosage: 1 DOSAGE FORM, UNKNOWN
     Route: 048
     Dates: start: 202111
  36. SUSPEN ER [Concomitant]
     Dosage: 1 DOSAGE FORM, UNKNOWN
     Route: 048
     Dates: start: 202111
  37. AMARYL [Concomitant]
     Active Substance: GLIMEPIRIDE
     Dosage: 1 DOSAGE FORM, UNKNOWN
     Route: 048
     Dates: start: 202111
  38. ACETYLCYSTEINE [Concomitant]
     Active Substance: ACETYLCYSTEINE
     Dosage: 200 MILLIGRAM
     Route: 048
  39. ACETYLCYSTEINE [Concomitant]
     Active Substance: ACETYLCYSTEINE
     Dosage: 1 DOSAGE FORM
     Route: 048
  40. Amanta [Concomitant]
     Indication: Parkinsonism
     Dosage: 1 DOSAGE FORM, DAILY
     Route: 048
     Dates: start: 20191113

REACTIONS (1)
  - Subdural haematoma [Recovered/Resolved]

NARRATIVE: CASE EVENT DATE: 20211112
